FAERS Safety Report 15992875 (Version 6)
Quarter: 2020Q1

REPORT INFORMATION
  Report Type: Report from Study
  Country: US (occurrence: US)
  Receive Date: 20190221
  Receipt Date: 20200218
  Transmission Date: 20200409
  Serious: Yes (Other)
  Sender: FDA-Public Use
  Company Number: PHEH2019US007556

PATIENT
  Sex: Female

DRUGS (4)
  1. ILARIS [Suspect]
     Active Substance: CANAKINUMAB
     Indication: STILL^S DISEASE
     Dosage: 150 MG, Q3W
     Route: 058
     Dates: start: 20151029
  2. ILARIS [Suspect]
     Active Substance: CANAKINUMAB
     Dosage: 150 MG, Q2W
     Route: 058
     Dates: end: 2016
  3. ILARIS [Suspect]
     Active Substance: CANAKINUMAB
     Dosage: UNK UNK, QMO
     Route: 065
     Dates: start: 20190226
  4. ILARIS [Suspect]
     Active Substance: CANAKINUMAB
     Dosage: 150 MG, QMO
     Route: 058
     Dates: start: 20180225

REACTIONS (6)
  - Inappropriate schedule of product administration [Unknown]
  - Interstitial lung disease [Not Recovered/Not Resolved]
  - Gastrointestinal disorder [Unknown]
  - Malaise [Unknown]
  - Condition aggravated [Unknown]
  - Still^s disease [Unknown]
